FAERS Safety Report 12186578 (Version 2)
Quarter: 2016Q2

REPORT INFORMATION
  Report Type: Spontaneous
  Country: US (occurrence: US)
  Receive Date: 20160317
  Receipt Date: 20160426
  Transmission Date: 20160815
  Serious: Yes (Other)
  Sender: FDA-Public Use
  Company Number: US-BEH-2016060010

PATIENT
  Age: 57 Year
  Sex: Female
  Weight: 60 kg

DRUGS (18)
  1. HYDROMORPHONE ER [Concomitant]
     Active Substance: HYDROMORPHONE HYDROCHLORIDE
  2. CREON [Concomitant]
     Active Substance: PANCRELIPASE AMYLASE\PANCRELIPASE LIPASE\PANCRELIPASE PROTEASE
  3. VITAMIN C [Concomitant]
     Active Substance: ASCORBIC ACID
  4. CEFDINIR. [Concomitant]
     Active Substance: CEFDINIR
  5. STOOL SOFTENER [Concomitant]
     Active Substance: DOCUSATE CALCIUM
  6. MULTIVITAMINS [Concomitant]
     Active Substance: VITAMINS
  7. DILANTIN [Concomitant]
     Active Substance: PHENYTOIN
  8. SODIUM CHLORIDE. [Concomitant]
     Active Substance: SODIUM CHLORIDE
  9. BERINERT [Suspect]
     Active Substance: HUMAN C1-ESTERASE INHIBITOR
     Indication: HEREDITARY ANGIOEDEMA
     Route: 042
  10. EPIPEN [Concomitant]
     Active Substance: EPINEPHRINE
  11. VITAMIN D [Concomitant]
     Active Substance: CHOLECALCIFEROL
  12. CITALOPRAM [Concomitant]
     Active Substance: CITALOPRAM HYDROBROMIDE
  13. FISH OIL [Concomitant]
     Active Substance: FISH OIL
  14. DIPHENHYDRAMINE. [Concomitant]
     Active Substance: DIPHENHYDRAMINE
  15. HEPARIN [Concomitant]
     Active Substance: HEPARIN SODIUM
  16. CINRYZE [Concomitant]
     Active Substance: HUMAN C1-ESTERASE INHIBITOR
  17. PHILLIP^S MILK OF MAGNESIA [Concomitant]
  18. SYNTHROID [Concomitant]
     Active Substance: LEVOTHYROXINE SODIUM

REACTIONS (3)
  - Bronchitis [Recovering/Resolving]
  - Hypotension [Recovering/Resolving]
  - Pancreatitis [Recovering/Resolving]

NARRATIVE: CASE EVENT DATE: 20160304
